FAERS Safety Report 26013903 (Version 1)
Quarter: 2025Q4

REPORT INFORMATION
  Report Type: Spontaneous
  Country: EU (occurrence: EU)
  Receive Date: 20251108
  Receipt Date: 20251108
  Transmission Date: 20260117
  Serious: Yes (Disabling)
  Sender: TEVA
  Company Number: None

PATIENT
  Age: 58 Year
  Sex: Female

DRUGS (2)
  1. OLANZAPINE [Suspect]
     Active Substance: OLANZAPINE
     Indication: Psychotic disorder
     Dosage: WEIGHT 25MG IN THE EVENING, 5MG IN THE MORNING /?25MG IN THE EVENING, 5MG IN THE MORNING, OLANZAP...
     Route: 048
     Dates: start: 201004
  2. ABILIFY [Concomitant]
     Active Substance: ARIPIPRAZOLE
     Indication: Product used for unknown indication
     Route: 048

REACTIONS (10)
  - Fluid retention [Recovered/Resolved with Sequelae]
  - Discharge [Recovered/Resolved with Sequelae]
  - Ulcer [Recovered/Resolved with Sequelae]
  - Weight increased [Recovered/Resolved with Sequelae]
  - Lymphatic duct injury [Recovered/Resolved with Sequelae]
  - Erythema [Recovered/Resolved with Sequelae]
  - Quality of life decreased [Recovered/Resolved with Sequelae]
  - Erysipelas [Recovered/Resolved with Sequelae]
  - Mobility decreased [Recovered/Resolved with Sequelae]
  - Oedema [Recovered/Resolved with Sequelae]

NARRATIVE: CASE EVENT DATE: 20100101
